FAERS Safety Report 4307255-2 (Version None)
Quarter: 2004Q1

REPORT INFORMATION
  Report Type: 
  Country: None (occurrence: None)
  Receive Date: 20040226
  Receipt Date: 20040210
  Transmission Date: 20041129
  Serious: Yes (Hospitalization)
  Sender: FDA-Public Use
  Company Number: 183437

PATIENT
  Age: 46 Year
  Sex: Female

DRUGS (2)
  1. AVONEX [Suspect]
     Indication: MULTIPLE SCLEROSIS
     Dates: start: 20010101, end: 20030101
  2. AVONEX [Suspect]
     Indication: MULTIPLE SCLEROSIS
     Dates: start: 20030101, end: 20031001

REACTIONS (5)
  - HEPATIC CIRRHOSIS [None]
  - HEPATIC NECROSIS [None]
  - HEPATITIS [None]
  - INFLUENZA LIKE ILLNESS [None]
  - WEIGHT DECREASED [None]
